FAERS Safety Report 23847716 (Version 1)
Quarter: 2024Q2

REPORT INFORMATION
  Report Type: Spontaneous
  Country: US (occurrence: None)
  Receive Date: 20240510
  Receipt Date: 20240510
  Transmission Date: 20240716
  Serious: Yes (Disabling, Other)
  Sender: FDA-Public Use
  Company Number: None

PATIENT
  Age: 32 Year
  Sex: Male
  Weight: 60.75 kg

DRUGS (1)
  1. HERBALS\MITRAGYNINE [Suspect]
     Active Substance: HERBALS\MITRAGYNINE
     Indication: Product used for unknown indication
     Dosage: OZ AS NEEDED ORAL?
     Route: 048
     Dates: start: 20240501, end: 20240501

REACTIONS (5)
  - Dizziness [None]
  - Stupor [None]
  - Nausea [None]
  - Drug withdrawal syndrome [None]
  - Central nervous system stimulation [None]

NARRATIVE: CASE EVENT DATE: 20240501
